FAERS Safety Report 16399041 (Version 4)
Quarter: 2019Q3

REPORT INFORMATION
  Report Type: Spontaneous
  Country: PL (occurrence: PL)
  Receive Date: 20190606
  Receipt Date: 20190816
  Transmission Date: 20191004
  Serious: Yes (Death, Other)
  Sender: FDA-Public Use
  Company Number: PL-ASTRAZENECA-2019SE81155

PATIENT
  Age: 573 Month
  Sex: Female

DRUGS (1)
  1. IRESSA [Suspect]
     Active Substance: GEFITINIB
     Indication: NON-SMALL CELL LUNG CANCER
     Route: 048

REACTIONS (11)
  - Psychiatric symptom [Unknown]
  - Headache [Unknown]
  - Paraneoplastic syndrome [Unknown]
  - Acne [Recovering/Resolving]
  - Pleural effusion [Unknown]
  - Degenerative bone disease [Unknown]
  - Encephalitis [Fatal]
  - Extrapyramidal disorder [Unknown]
  - Pneumothorax [Unknown]
  - Aphasia [Unknown]
  - Pulmonary embolism [Unknown]

NARRATIVE: CASE EVENT DATE: 201906
